FAERS Safety Report 6235437-1 (Version None)
Quarter: 2009Q2

REPORT INFORMATION
  Report Type: 
  Country: None (occurrence: None)
  Receive Date: 20090618
  Receipt Date: 20090226
  Transmission Date: 20091009
  Serious: No
  Sender: FDA-Public Use
  Company Number: US-ASTRAZENECA-2009UW05349

PATIENT
  Age: 69 Year
  Sex: Male
  Weight: 147.4 kg

DRUGS (1)
  1. RHINOCORT [Suspect]
     Dosage: 128 MCG DAILY
     Route: 045

REACTIONS (1)
  - RHINORRHOEA [None]
